FAERS Safety Report 8191021-4 (Version None)
Quarter: 2012Q1

REPORT INFORMATION
  Report Type: 
  Country: None (occurrence: None)
  Receive Date: 20120221
  Receipt Date: 20111121
  Transmission Date: 20120608
  Serious: No
  Sender: FDA-Public Use
  Company Number: 100025655

PATIENT
  Age: 55 Year
  Sex: Female

DRUGS (11)
  1. CYTOMEL (LIOTHYRONINE SODIUM) (LIOTHYRONINE SODIUM) [Concomitant]
  2. METFORMIN HCL [Concomitant]
  3. SYNTHROID (LEVOTHYROXINE SODIUM) (LEVOTHYROXINE SODIUM) [Concomitant]
  4. ONGLYZA (SAXAGLIPTIN HYDROCHLORIDE) (SAXAGLIPTIN HYDROCHLORIDE) [Concomitant]
  5. GLIMEPIRIDE [Concomitant]
  6. VIIBRYD [Suspect]
     Indication: DEPRESSION
     Dosage: 30 MG (30 MG, 1 IN 1 D), ORAL
     Route: 048
     Dates: start: 20111010, end: 20111118
  7. VIIBRYD [Suspect]
     Indication: DEPRESSION
     Dosage: 30 MG (30 MG, 1 IN 1 D), ORAL
     Route: 048
     Dates: start: 20111119
  8. VIIBRYD [Suspect]
     Indication: DEPRESSION
     Dosage: 10 MG (10 MG, 1 N 1 D), ORAL; 20 MG (20 MG, 1 IN 1 D), ORAL
     Route: 048
     Dates: start: 20110919, end: 20110925
  9. VIIBRYD [Suspect]
     Indication: DEPRESSION
     Dosage: 10 MG (10 MG, 1 N 1 D), ORAL; 20 MG (20 MG, 1 IN 1 D), ORAL
     Route: 048
     Dates: start: 20110926, end: 20111002
  10. VIIBRYD [Suspect]
     Indication: DEPRESSION
     Dosage: 40 MG (40 MG, 1 IN 1 D), ORAL
     Route: 048
     Dates: start: 20111003, end: 20111009
  11. TRAMADOL HCL [Concomitant]

REACTIONS (4)
  - HEADACHE [None]
  - FEELING ABNORMAL [None]
  - ALOPECIA [None]
  - ARTHRALGIA [None]
